FAERS Safety Report 5723045-8 (Version None)
Quarter: 2008Q2

REPORT INFORMATION
  Report Type: 
  Country: None (occurrence: None)
  Receive Date: 20080425
  Receipt Date: 20080417
  Transmission Date: 20081010
  Serious: Yes (Death, Hospitalization)
  Sender: FDA-Public Use
  Company Number: 2008-00725

PATIENT
  Age: 64 Year
  Sex: Male
  Weight: 90 kg

DRUGS (8)
  1. VELCADE [Suspect]
     Indication: MULTIPLE MYELOMA
     Dosage: 1.7 MG, INTRAVENOUS
     Route: 042
     Dates: start: 20080110, end: 20080117
  2. NORMITEN (ATENOLOL) [Concomitant]
  3. LAMIVUDINE [Concomitant]
  4. EPREX [Concomitant]
  5. DURAGESIC [Concomitant]
  6. MELPHALAN [Concomitant]
  7. PREDNISONE TAB [Concomitant]
  8. THALIDOMIDE [Concomitant]

REACTIONS (2)
  - DISEASE PROGRESSION [None]
  - LEUKAEMIA [None]
